FAERS Safety Report 9139846 (Version 2)
Quarter: 2013Q1

REPORT INFORMATION
  Report Type: Spontaneous
  Country: CA (occurrence: CA)
  Receive Date: 20130305
  Receipt Date: 20130325
  Transmission Date: 20140127
  Serious: Yes (Other)
  Sender: FDA-Public Use
  Company Number: CA-PFIZER INC-2013073419

PATIENT
  Age: 72 Year
  Sex: Female

DRUGS (5)
  1. TECTA [Suspect]
     Indication: ANTACID THERAPY
     Dosage: 40 MG, 1X/DAY
     Route: 048
     Dates: start: 20120423
  2. TECTA [Suspect]
     Dosage: 40 MG, 1X/DAY
     Route: 048
     Dates: start: 20120426
  3. NORVASC [Concomitant]
     Dosage: 5 MG, 1X/DAY
     Route: 048
  4. BISOPROLOL [Concomitant]
     Dosage: 1/4 OF A 5 MG TAB
     Route: 048
  5. HYDROCHLOROTHIAZIDE [Concomitant]
     Dosage: 1/4 OF A 25 MG TAB
     Route: 048

REACTIONS (16)
  - Paralysis [Recovered/Resolved]
  - Amnesia [Recovered/Resolved]
  - Aphonia [Recovered/Resolved]
  - Dyspnoea [Recovered/Resolved]
  - Eye irritation [Recovered/Resolved]
  - Fall [Recovered/Resolved]
  - Hyperhidrosis [Recovered/Resolved]
  - Syncope [Recovered/Resolved]
  - Throat tightness [Recovered/Resolved]
  - Urinary incontinence [Recovered/Resolved]
  - Abdominal pain upper [Recovered/Resolved]
  - Confusional state [Recovered/Resolved]
  - Asthenia [Recovered/Resolved]
  - Fatigue [Recovered/Resolved]
  - Malaise [Recovered/Resolved]
  - Nausea [Recovered/Resolved]
